FAERS Safety Report 4461629-8 (Version None)
Quarter: 2004Q3

REPORT INFORMATION
  Report Type: 
  Country: None (occurrence: None)
  Receive Date: 20040917
  Receipt Date: 20040916
  Transmission Date: 20050211
  Serious: Yes (Hospitalization, Other)
  Sender: FDA-Public Use
  Company Number: 200410083BFR

PATIENT
  Age: 15 Month
  Sex: Male

DRUGS (51)
  1. KOGENATE FS [Suspect]
     Indication: FACTOR VIII DEFICIENCY
     Dosage: SEE IMAGE
     Dates: start: 20030917, end: 20030929
  2. KOGENATE FS [Suspect]
     Indication: HAEMATOMA
     Dosage: SEE IMAGE
     Dates: start: 20030917, end: 20030929
  3. KOGENATE FS [Suspect]
     Indication: FACTOR VIII DEFICIENCY
     Dosage: SEE IMAGE
     Dates: start: 20030917, end: 20030929
  4. KOGENATE FS [Suspect]
     Indication: HAEMATOMA
     Dosage: SEE IMAGE
     Dates: start: 20030917, end: 20030929
  5. KOGENATE FS [Suspect]
     Indication: FACTOR VIII DEFICIENCY
     Dosage: SEE IMAGE
     Dates: start: 20030917, end: 20030929
  6. KOGENATE FS [Suspect]
     Indication: HAEMATOMA
     Dosage: SEE IMAGE
     Dates: start: 20030917, end: 20030929
  7. KOGENATE FS [Suspect]
     Indication: FACTOR VIII DEFICIENCY
     Dosage: SEE IMAGE
     Dates: start: 20031015, end: 20031101
  8. KOGENATE FS [Suspect]
     Indication: HAEMATOMA
     Dosage: SEE IMAGE
     Dates: start: 20031015, end: 20031101
  9. KOGENATE FS [Suspect]
     Indication: FACTOR VIII DEFICIENCY
     Dosage: SEE IMAGE
     Dates: start: 20031101, end: 20031215
  10. KOGENATE FS [Suspect]
     Indication: HAEMATOMA
     Dosage: SEE IMAGE
     Dates: start: 20031101, end: 20031215
  11. KOGENATE FS [Suspect]
     Indication: FACTOR VIII DEFICIENCY
     Dosage: SEE IMAGE
     Dates: start: 20031216, end: 20031231
  12. KOGENATE FS [Suspect]
     Indication: HAEMATOMA
     Dosage: SEE IMAGE
     Dates: start: 20031216, end: 20031231
  13. KOGENATE FS [Suspect]
     Indication: FACTOR VIII DEFICIENCY
     Dosage: SEE IMAGE
     Dates: start: 20400101, end: 20040201
  14. KOGENATE FS [Suspect]
     Indication: HAEMATOMA
     Dosage: SEE IMAGE
     Dates: start: 20400101, end: 20040201
  15. KOGENATE FS [Suspect]
     Indication: FACTOR VIII DEFICIENCY
     Dosage: SEE IMAGE
     Dates: start: 20040201, end: 20040229
  16. KOGENATE FS [Suspect]
     Indication: HAEMATOMA
     Dosage: SEE IMAGE
     Dates: start: 20040201, end: 20040229
  17. KOGENATE FS [Suspect]
     Indication: FACTOR VIII DEFICIENCY
     Dosage: SEE IMAGE
     Dates: start: 20040301, end: 20040315
  18. KOGENATE FS [Suspect]
     Indication: HAEMATOMA
     Dosage: SEE IMAGE
     Dates: start: 20040301, end: 20040315
  19. KOGENATE FS [Suspect]
     Indication: FACTOR VIII DEFICIENCY
     Dosage: SEE IMAGE
     Dates: start: 20040316, end: 20040515
  20. KOGENATE FS [Suspect]
     Indication: HAEMATOMA
     Dosage: SEE IMAGE
     Dates: start: 20040316, end: 20040515
  21. KOGENATE FS [Suspect]
     Indication: FACTOR VIII DEFICIENCY
     Dosage: SEE IMAGE
     Dates: start: 20040516, end: 20040531
  22. KOGENATE FS [Suspect]
     Indication: HAEMATOMA
     Dosage: SEE IMAGE
     Dates: start: 20040516, end: 20040531
  23. KOGENATE FS [Suspect]
     Indication: FACTOR VIII DEFICIENCY
     Dosage: SEE IMAGE
     Dates: start: 20031001
  24. KOGENATE FS [Suspect]
     Indication: HAEMATOMA
     Dosage: SEE IMAGE
     Dates: start: 20031001
  25. KOGENATE FS [Suspect]
     Indication: FACTOR VIII DEFICIENCY
     Dosage: SEE IMAGE
     Dates: start: 20031005
  26. KOGENATE FS [Suspect]
     Indication: HAEMATOMA
     Dosage: SEE IMAGE
     Dates: start: 20031005
  27. KOGENATE FS [Suspect]
     Indication: FACTOR VIII DEFICIENCY
     Dosage: SEE IMAGE
     Dates: start: 20031007
  28. KOGENATE FS [Suspect]
     Indication: HAEMATOMA
     Dosage: SEE IMAGE
     Dates: start: 20031007
  29. KOGENATE FS [Suspect]
     Indication: FACTOR VIII DEFICIENCY
     Dosage: SEE IMAGE
     Dates: start: 20031009
  30. KOGENATE FS [Suspect]
     Indication: HAEMATOMA
     Dosage: SEE IMAGE
     Dates: start: 20031009
  31. KOGENATE FS [Suspect]
     Indication: FACTOR VIII DEFICIENCY
     Dosage: SEE IMAGE
     Dates: start: 20031013
  32. KOGENATE FS [Suspect]
     Indication: HAEMATOMA
     Dosage: SEE IMAGE
     Dates: start: 20031013
  33. KOGENATE FS [Suspect]
     Indication: FACTOR VIII DEFICIENCY
     Dosage: SEE IMAGE
     Dates: start: 20040601
  34. KOGENATE FS [Suspect]
     Indication: HAEMATOMA
     Dosage: SEE IMAGE
     Dates: start: 20040601
  35. KOGENATE FS [Suspect]
  36. KOGENATE FS [Suspect]
  37. KOGENATE FS [Suspect]
  38. KOGENATE FS [Suspect]
  39. KOGENATE FS [Suspect]
  40. KOGENATE FS [Suspect]
  41. KOGENATE FS [Suspect]
  42. KOGENATE FS [Suspect]
  43. KOGENATE FS [Suspect]
  44. KOGENATE FS [Suspect]
  45. KOGENATE FS [Suspect]
  46. KOGENATE FS [Suspect]
  47. KOGENATE FS [Suspect]
  48. KOGENATE FS [Suspect]
  49. KOGENATE FS [Suspect]
  50. KOGENATE FS [Suspect]
  51. HYDROCORTISONE [Concomitant]

REACTIONS (4)
  - ANTIBODY TEST POSITIVE [None]
  - ARTHRITIS BACTERIAL [None]
  - HAEMARTHROSIS [None]
  - PNEUMOCOCCAL INFECTION [None]
